FAERS Safety Report 6110858-6 (Version None)
Quarter: 2009Q1

REPORT INFORMATION
  Report Type: 
  Country: None (occurrence: None)
  Receive Date: 20090311
  Receipt Date: 20090227
  Transmission Date: 20090719
  Serious: Yes (Other)
  Sender: FDA-Public Use
  Company Number: BR-ROCHE-611182

PATIENT
  Age: 16 Year
  Sex: Male
  Weight: 56 kg

DRUGS (1)
  1. ROACUTAN [Suspect]
     Indication: ACNE
     Route: 048
     Dates: start: 20080701, end: 20090101

REACTIONS (2)
  - BONE DISORDER [None]
  - LIGAMENT RUPTURE [None]
